FAERS Safety Report 5402927-0 (Version None)
Quarter: 2007Q3

REPORT INFORMATION
  Report Type: 
  Country: None (occurrence: None)
  Receive Date: 20070801
  Receipt Date: 20070724
  Transmission Date: 20080115
  Serious: Yes (Death, Hospitalization)
  Sender: FDA-Public Use
  Company Number: US-AMGEN-US235866

PATIENT
  Sex: Female

DRUGS (2)
  1. ENBREL [Suspect]
     Indication: RHEUMATOID ARTHRITIS
     Route: 058
     Dates: start: 20010101, end: 20070701
  2. METHOTREXATE [Concomitant]
     Route: 048
     Dates: start: 20050101

REACTIONS (2)
  - ANEURYSM RUPTURED [None]
  - RUPTURED CEREBRAL ANEURYSM [None]
